FAERS Safety Report 4976841-9 (Version None)
Quarter: 2006Q2

REPORT INFORMATION
  Report Type: 
  Country: None (occurrence: None)
  Receive Date: 20060413
  Receipt Date: 20060404
  Transmission Date: 20061013
  Serious: Yes (Hospitalization)
  Sender: FDA-Public Use
  Company Number: 2006040470

PATIENT
  Age: 73 Year
  Sex: Male

DRUGS (1)
  1. XALATAN [Suspect]
     Indication: GLAUCOMA
     Dosage: 2 DROP (1 DROP, 2 IN 1 D), OPHTHALMIC
     Route: 047

REACTIONS (2)
  - DRUG DOSE OMISSION [None]
  - INTESTINAL OBSTRUCTION [None]
